FAERS Safety Report 7254238-9 (Version None)
Quarter: 2011Q1

REPORT INFORMATION
  Report Type: 
  Country: None (occurrence: None)
  Receive Date: 20110129
  Receipt Date: 20100104
  Transmission Date: 20110831
  Serious: No
  Sender: FDA-Public Use
  Company Number: US-ABBOTT-10P-163-0617713-00

PATIENT
  Sex: Female
  Weight: 71.732 kg

DRUGS (3)
  1. HUMIRA [Suspect]
  2. HUMIRA [Suspect]
     Indication: CROHN'S DISEASE
     Dosage: 160 MG LOADING DOSE DAY 1
     Dates: start: 20091113
  3. HUMIRA [Suspect]
     Dosage: 80 MG LOADING DOSE DAY 15

REACTIONS (3)
  - DIARRHOEA [None]
  - ABDOMINAL PAIN [None]
  - ABDOMINAL DISCOMFORT [None]
